FAERS Safety Report 15321663 (Version 2)
Quarter: 2018Q3

REPORT INFORMATION
  Report Type: Report from Study
  Country: CZ (occurrence: CZ)
  Receive Date: 20180827
  Receipt Date: 20180830
  Transmission Date: 20181010
  Serious: Yes (Hospitalization)
  Sender: FDA-Public Use
  Company Number: CZ-ASTRAZENECA-2018SE99907

PATIENT
  Age: 63 Year
  Sex: Female

DRUGS (6)
  1. ALGIFENNEO [Concomitant]
     Indication: ABDOMINAL PAIN
     Dosage: 20.0GTT AS REQUIRED
     Route: 048
     Dates: start: 20180417
  2. OLAPARIB. [Suspect]
     Active Substance: OLAPARIB
     Indication: OVARIAN CANCER
     Route: 048
     Dates: start: 20180710, end: 20180801
  3. HELICID [Concomitant]
     Active Substance: OMEPRAZOLE
     Indication: DYSPEPSIA
     Route: 048
     Dates: start: 20180710
  4. DEGAN [Concomitant]
     Active Substance: METOCLOPRAMIDE HYDROCHLORIDE
     Indication: DYSPEPSIA
     Route: 048
     Dates: start: 20180710
  5. BETAXA [Concomitant]
     Indication: HYPERTENSION
     Route: 048
     Dates: start: 2013
  6. OLAPARIB. [Suspect]
     Active Substance: OLAPARIB
     Indication: OVARIAN CANCER
     Route: 048
     Dates: start: 20160906, end: 20160912

REACTIONS (1)
  - Gastroenteritis [Recovered/Resolved]

NARRATIVE: CASE EVENT DATE: 20180801
